FAERS Safety Report 14505992 (Version 2)
Quarter: 2018Q1

REPORT INFORMATION
  Report Type: Spontaneous
  Country: US (occurrence: US)
  Receive Date: 20180208
  Receipt Date: 20180302
  Transmission Date: 20180509
  Serious: Yes (Disabling, Other)
  Sender: FDA-Public Use
  Company Number: US-ASTRAZENECA-2018SE14271

PATIENT
  Age: 29810 Day
  Sex: Male

DRUGS (3)
  1. TARCEVA [Concomitant]
     Active Substance: ERLOTINIB HYDROCHLORIDE
     Dates: start: 20171222
  2. IRESSA [Suspect]
     Active Substance: GEFITINIB
     Route: 048
  3. TAGRISSO [Suspect]
     Active Substance: OSIMERTINIB
     Indication: NON-SMALL CELL LUNG CANCER METASTATIC
     Route: 048
     Dates: start: 20171222, end: 20180125

REACTIONS (12)
  - Hypersensitivity vasculitis [Not Recovered/Not Resolved]
  - Oedema peripheral [Unknown]
  - Lung disorder [Unknown]
  - Malignant neoplasm progression [Unknown]
  - Muscle spasms [Unknown]
  - Hepatic mass [Unknown]
  - Skin exfoliation [Unknown]
  - Constipation [Unknown]
  - Dysuria [Unknown]
  - Haematuria [Unknown]
  - Ulcer [Unknown]
  - Cough [Unknown]

NARRATIVE: CASE EVENT DATE: 20180123
